FAERS Safety Report 18331094 (Version 3)
Quarter: 2023Q4

REPORT INFORMATION
  Report Type: Spontaneous
  Country: US (occurrence: None)
  Receive Date: 20200930
  Receipt Date: 20231026
  Transmission Date: 20240109
  Serious: Yes (Hospitalization, Other)
  Sender: FDA-Public Use
  Company Number: 2020SF25149

PATIENT
  Age: 503 Month
  Sex: Female
  Weight: 158.3 kg

DRUGS (59)
  1. XIGDUO XR [Suspect]
     Active Substance: DAPAGLIFLOZIN PROPANEDIOL\METFORMIN HYDROCHLORIDE
     Indication: Type 2 diabetes mellitus
     Route: 048
     Dates: start: 20170627, end: 201709
  2. XIGDUO XR [Suspect]
     Active Substance: DAPAGLIFLOZIN PROPANEDIOL\METFORMIN HYDROCHLORIDE
     Indication: Blood pressure decreased
     Route: 048
     Dates: start: 20170627, end: 201709
  3. XIGDUO XR [Suspect]
     Active Substance: DAPAGLIFLOZIN PROPANEDIOL\METFORMIN HYDROCHLORIDE
     Indication: Weight decreased
     Route: 048
     Dates: start: 20170627, end: 201709
  4. XIGDUO XR [Suspect]
     Active Substance: DAPAGLIFLOZIN PROPANEDIOL\METFORMIN HYDROCHLORIDE
     Indication: Type 2 diabetes mellitus
     Route: 048
     Dates: start: 20170627
  5. XIGDUO XR [Suspect]
     Active Substance: DAPAGLIFLOZIN PROPANEDIOL\METFORMIN HYDROCHLORIDE
     Indication: Blood pressure decreased
     Route: 048
     Dates: start: 20170627
  6. XIGDUO XR [Suspect]
     Active Substance: DAPAGLIFLOZIN PROPANEDIOL\METFORMIN HYDROCHLORIDE
     Indication: Weight decreased
     Route: 048
     Dates: start: 20170627
  7. XIGDUO XR [Suspect]
     Active Substance: DAPAGLIFLOZIN PROPANEDIOL\METFORMIN HYDROCHLORIDE
     Indication: Type 2 diabetes mellitus
     Route: 048
     Dates: start: 20170322, end: 20170815
  8. XIGDUO XR [Suspect]
     Active Substance: DAPAGLIFLOZIN PROPANEDIOL\METFORMIN HYDROCHLORIDE
     Indication: Blood pressure decreased
     Route: 048
     Dates: start: 20170322, end: 20170815
  9. XIGDUO XR [Suspect]
     Active Substance: DAPAGLIFLOZIN PROPANEDIOL\METFORMIN HYDROCHLORIDE
     Indication: Weight decreased
     Route: 048
     Dates: start: 20170322, end: 20170815
  10. LEVEMIR [Concomitant]
     Active Substance: INSULIN DETEMIR
  11. DIAZEPAM [Concomitant]
     Active Substance: DIAZEPAM
  12. OXYCODONE [Concomitant]
     Active Substance: OXYCODONE
  13. HUMALOG [Concomitant]
     Active Substance: INSULIN LISPRO
  14. ATORVASTATIN [Concomitant]
     Active Substance: ATORVASTATIN
  15. LEVOTHYROXINE [Concomitant]
     Active Substance: LEVOTHYROXINE
  16. AMLODIPINE BESYLATE [Concomitant]
     Active Substance: AMLODIPINE BESYLATE
  17. BYDUREON [Concomitant]
     Active Substance: EXENATIDE
  18. CYCLOBENZAPRINE [Concomitant]
     Active Substance: CYCLOBENZAPRINE
  19. METOPROLOL TARTRATE [Concomitant]
     Active Substance: METOPROLOL TARTRATE
  20. HYDROCHLOROTHIAZIDE [Concomitant]
     Active Substance: HYDROCHLOROTHIAZIDE
  21. ACETAMINOPHEN\HYDROCODONE [Concomitant]
     Active Substance: ACETAMINOPHEN\HYDROCODONE
  22. METOCLOPRAMIDE [Concomitant]
     Active Substance: METOCLOPRAMIDE
  23. SULFAMETHOXAZOLE [Concomitant]
     Active Substance: SULFAMETHOXAZOLE
  24. PENICILLIN [Concomitant]
     Active Substance: PENICILLIN
  25. FLUTICASONE [Concomitant]
     Active Substance: FLUTICASONE
  26. ERTAPENEM [Concomitant]
     Active Substance: ERTAPENEM
  27. LYRICA [Concomitant]
     Active Substance: PREGABALIN
  28. MAGNESIUM [Concomitant]
     Active Substance: MAGNESIUM
  29. TRAMADOL [Concomitant]
     Active Substance: TRAMADOL\TRAMADOL HYDROCHLORIDE
  30. FENTANYL [Concomitant]
     Active Substance: FENTANYL\FENTANYL CITRATE
  31. LOVENOX [Concomitant]
     Active Substance: ENOXAPARIN SODIUM
  32. GLUCAGON [Concomitant]
     Active Substance: GLUCAGON\GLUCAGON HYDROCHLORIDE\WATER
  33. MAGNESIUM SULFATE [Concomitant]
     Active Substance: MAGNESIUM SULFATE\MAGNESIUM SULFATE HEPTAHYDRATE
  34. AMIKACIN [Concomitant]
     Active Substance: AMIKACIN
  35. AMOXICILLIN\CLAVULANIC ACID [Concomitant]
     Active Substance: AMOXICILLIN\CLAVULANIC ACID
  36. SULBACTAM [Concomitant]
     Active Substance: SULBACTAM
  37. AZTREONAM [Concomitant]
     Active Substance: AZTREONAM
  38. CEFEPIME [Concomitant]
     Active Substance: CEFEPIME HYDROCHLORIDE
  39. CIPROFLOXACIN [Concomitant]
     Active Substance: CIPROFLOXACIN
  40. CEFTRIAXONE [Concomitant]
     Active Substance: CEFTRIAXONE\CEFTRIAXONE SODIUM
  41. GENTAMICIN [Concomitant]
     Active Substance: GENTAMICIN
  42. IMIPENEM [Concomitant]
     Active Substance: IMIPENEM
  43. MEROPENEM [Concomitant]
     Active Substance: MEROPENEM
  44. PIPERACILLIN [Concomitant]
     Active Substance: PIPERACILLIN
  45. TAZOBACTAM [Concomitant]
     Active Substance: TAZOBACTAM
  46. TETRACYCLINE [Concomitant]
     Active Substance: TETRACYCLINE
  47. TRIMETHOPRIM [Concomitant]
     Active Substance: TRIMETHOPRIM
  48. DOCUSATE SODIUM [Concomitant]
     Active Substance: DOCUSATE SODIUM
  49. NORVASC [Concomitant]
     Active Substance: AMLODIPINE BESYLATE
  50. METFORMIN [Concomitant]
     Active Substance: METFORMIN HYDROCHLORIDE
  51. POLYETHYLENE GLYCOL [Concomitant]
     Active Substance: POLYETHYLENE GLYCOL
  52. SENNA [Concomitant]
     Active Substance: SENNA LEAF\SENNOSIDES\SENNOSIDES A AND B
  53. BISACODYL [Concomitant]
     Active Substance: BISACODYL
  54. LACTIC ACID [Concomitant]
     Active Substance: LACTIC ACID
  55. ROSIGLITAZONE [Concomitant]
     Active Substance: ROSIGLITAZONE
  56. AMARYL [Concomitant]
     Active Substance: GLIMEPIRIDE
  57. AVANDIA [Concomitant]
     Active Substance: ROSIGLITAZONE MALEATE
  58. LORTAB [Concomitant]
     Active Substance: ACETAMINOPHEN\HYDROCODONE BITARTRATE
  59. TRIBENZOR [Concomitant]
     Active Substance: AMLODIPINE BESYLATE\HYDROCHLOROTHIAZIDE\OLMESARTAN MEDOXOMIL

REACTIONS (14)
  - Necrotising soft tissue infection [Unknown]
  - Sepsis [Unknown]
  - Perineal abscess [Unknown]
  - Fournier^s gangrene [Unknown]
  - Perineal cellulitis [Unknown]
  - Necrotising fasciitis [Unknown]
  - Abscess limb [Unknown]
  - Cellulitis [Unknown]
  - Groin abscess [Unknown]
  - Anal abscess [Unknown]
  - Genital abscess [Unknown]
  - Nausea [Unknown]
  - Pain [Unknown]
  - Vomiting [Unknown]

NARRATIVE: CASE EVENT DATE: 20170801
